FAERS Safety Report 23845953 (Version 1)
Quarter: 2024Q2

REPORT INFORMATION
  Report Type: Spontaneous
  Country: US (occurrence: US)
  Receive Date: 20240512
  Receipt Date: 20240512
  Transmission Date: 20240716
  Serious: No
  Sender: FDA-Public Use
  Company Number: US-CIPLA LTD.-2023US04972

PATIENT

DRUGS (2)
  1. ALBUTEROL [Suspect]
     Active Substance: ALBUTEROL
     Indication: Asthma
     Dosage: 1 OR 2 PUFFS, PRN (AS NEEDED)
     Dates: start: 2023
  2. ELIQUIS [Concomitant]
     Active Substance: APIXABAN
     Indication: Polycythaemia vera
     Dosage: 5 MG/1 TABLET TWICE A DAY
     Route: 065

REACTIONS (7)
  - Dyspnoea [Recovered/Resolved]
  - Cough [Recovered/Resolved]
  - Device ineffective [Unknown]
  - Device delivery system issue [Unknown]
  - Device issue [Unknown]
  - Product cleaning inadequate [Unknown]
  - Product substitution issue [Unknown]

NARRATIVE: CASE EVENT DATE: 20230101
